FAERS Safety Report 19718744 (Version 1)
Quarter: 2021Q3

REPORT INFORMATION
  Report Type: Spontaneous
  Country: FR (occurrence: FR)
  Receive Date: 20210818
  Receipt Date: 20210818
  Transmission Date: 20211014
  Serious: Yes (Other)
  Sender: FDA-Public Use
  Company Number: FR-PFIZER INC-202101019755

PATIENT
  Age: 32 Year
  Sex: Female

DRUGS (2)
  1. MERONEM [Suspect]
     Active Substance: MEROPENEM
     Indication: BRAIN EMPYEMA
     Dosage: 2 G, 3X/DAY
     Route: 042
     Dates: start: 20210617, end: 20210705
  2. VANCOMYCIN [Suspect]
     Active Substance: VANCOMYCIN
     Indication: BRAIN EMPYEMA
     Dosage: 1 G, 2X/DAY
     Route: 042
     Dates: start: 20210617, end: 20210705

REACTIONS (3)
  - Off label use [Unknown]
  - Hepatic cytolysis [Recovered/Resolved]
  - Cholestasis [Recovered/Resolved]

NARRATIVE: CASE EVENT DATE: 20210617
